FAERS Safety Report 22002295 (Version 1)
Quarter: 2023Q1

REPORT INFORMATION
  Report Type: Report from Study
  Country: TR (occurrence: TR)
  Receive Date: 20230217
  Receipt Date: 20230217
  Transmission Date: 20230417
  Serious: Yes (Death)
  Sender: FDA-Public Use
  Company Number: TR-ABBVIE-4310675

PATIENT
  Sex: Female

DRUGS (5)
  1. CARBIDOPA\LEVODOPA [Suspect]
     Active Substance: CARBIDOPA\LEVODOPA
     Indication: Parkinson^s disease
     Dosage: MORNING DOSE (ML): 8.00 CONTINUOUS DOSE (ML): 5.20 EXTRA DOSE (ML): 1.00
     Dates: start: 20150630
  2. CARBIDOPA\LEVODOPA [Suspect]
     Active Substance: CARBIDOPA\LEVODOPA
  3. Amantadine (PK MERZ) [Concomitant]
     Indication: Parkinson^s disease
     Dosage: 400 MILLIGRAM
     Route: 048
  4. Quetiapine (KETYA) [Concomitant]
     Indication: Sleep disorder
     Dosage: 25 MILLIGRAM
     Route: 048
  5. Rivastigmine (EXELON) [Concomitant]
     Indication: Dementia Alzheimer^s type
     Dosage: 12 MILLIGRAM
     Route: 048

REACTIONS (1)
  - Death [Fatal]
